FAERS Safety Report 23937350 (Version 1)
Quarter: 2024Q2

REPORT INFORMATION
  Report Type: Spontaneous
  Country: US (occurrence: US)
  Receive Date: 20240604
  Receipt Date: 20240604
  Transmission Date: 20240715
  Serious: No
  Sender: FDA-Public Use
  Company Number: US-BAYER-2024A075111

PATIENT
  Sex: Female

DRUGS (1)
  1. MIRALAX [Suspect]
     Active Substance: POLYETHYLENE GLYCOL 3350
     Indication: Nutritional supplementation
     Dosage: 17 G, QD
     Route: 048

REACTIONS (2)
  - Constipation [Unknown]
  - Drug ineffective [None]
